FAERS Safety Report 4854094-X (Version None)
Quarter: 2005Q4

REPORT INFORMATION
  Report Type: 
  Country: None (occurrence: None)
  Receive Date: 20051213
  Receipt Date: 20051202
  Transmission Date: 20060501
  Serious: Yes (Hospitalization, Other)
  Sender: FDA-Public Use
  Company Number: 2005046800

PATIENT
  Age: 82 Year
  Sex: Male
  Weight: 81.6475 kg

DRUGS (7)
  1. NEURONTIN [Suspect]
     Indication: CEREBROVASCULAR ACCIDENT
     Dosage: 600 MG (200 MG, 3 IN 1 D), ORAL
     Route: 048
     Dates: start: 20050101
  2. NEURONTIN [Suspect]
     Indication: NEURALGIA
     Dosage: 600 MG (200 MG, 3 IN 1 D), ORAL
     Route: 048
     Dates: start: 20050101
  3. NEURONTIN [Suspect]
     Indication: PAIN
     Dosage: 600 MG (200 MG, 3 IN 1 D), ORAL
     Route: 048
     Dates: start: 20050101
  4. WARFARIN SODIUM [Suspect]
     Indication: ANTICOAGULANT THERAPY
     Dosage: (3 IN 1 WK), ORAL
     Route: 048
  5. ZANAFLEX [Concomitant]
  6. BETA BLOCKING AGENTS (BETA BLOCKING AGENTS) [Concomitant]
  7. BACLOFEN [Concomitant]

REACTIONS (6)
  - BLOOD PRESSURE FLUCTUATION [None]
  - HYPOKINESIA [None]
  - LETHARGY [None]
  - MENTAL STATUS CHANGES [None]
  - PHARMACEUTICAL PRODUCT COMPLAINT [None]
  - POOR QUALITY DRUG ADMINISTERED [None]
